FAERS Safety Report 8096364 (Version 2)
Quarter: 2012Q4

REPORT INFORMATION
  Report Type: Report from Study
  Country: GB (occurrence: GB)
  Receive Date: 20110817
  Receipt Date: 20121019
  Transmission Date: 20130627
  Serious: Yes (Hospitalization)
  Sender: FDA-Public Use
  Company Number: GB-ROCHE-795326

PATIENT
  Age: 66 Year
  Sex: Female
  Weight: 92.9 kg

DRUGS (15)
  1. METHOXY POLYETHYLENE GLYCOL-EPOETIN BETA [Suspect]
     Indication: NEPHROGENIC ANAEMIA
     Dosage: DOSE FORM: PFS, LAST DOSE PRIOR TO SAE: 08 JULY 2011
     Route: 058
  2. ONE-ALPHA [Concomitant]
     Dosage: DRUG: 1-ALPHACALCIDOL. 0.5 UG ON ALTERNATE DAYS, 0.25MCG ON DAYS BETWEEN
     Route: 065
  3. ATORVASTATIN [Concomitant]
     Route: 048
  4. ATORVASTATIN [Concomitant]
     Route: 065
  5. CARVEDILOL [Concomitant]
     Route: 065
  6. FRUSEMIDE [Concomitant]
     Route: 048
  7. GLICLAZIDE [Concomitant]
     Route: 065
  8. IRBESARTAN [Concomitant]
     Route: 065
  9. PERINDOPRIL [Concomitant]
     Route: 065
  10. SODIUM BICARBONATE [Concomitant]
     Route: 048
  11. CYCLOPHOSPHAMIDE [Concomitant]
  12. DOXAZOSIN [Concomitant]
     Route: 065
  13. ASPIRIN [Concomitant]
     Route: 065
  14. MOVICOL [Concomitant]
     Dosage: TDD: 1
     Route: 065
  15. XALATAN [Concomitant]
     Dosage: TDD: 1
     Route: 065

REACTIONS (1)
  - VIIth nerve paralysis [Recovered/Resolved]
